FAERS Safety Report 10482670 (Version 2)
Quarter: 2014Q4

REPORT INFORMATION
  Report Type: Report from Study
  Country: CA (occurrence: CA)
  Receive Date: 20140929
  Receipt Date: 20141017
  Transmission Date: 20150528
  Serious: Yes (Other)
  Sender: FDA-Public Use
  Company Number: PHHY2014CA127326

PATIENT
  Age: 60 Year
  Sex: Female

DRUGS (1)
  1. ACLASTA [Suspect]
     Active Substance: ZOLEDRONIC ACID
     Indication: OSTEOPOROSIS
     Dosage: UNK
     Route: 042
     Dates: start: 20131016

REACTIONS (2)
  - Breast cancer [Recovering/Resolving]
  - Breast pain [Recovering/Resolving]

NARRATIVE: CASE EVENT DATE: 201408
